FAERS Safety Report 8136813-2 (Version None)
Quarter: 2012Q1

REPORT INFORMATION
  Report Type: 
  Country: None (occurrence: None)
  Receive Date: 20120214
  Receipt Date: 20120206
  Transmission Date: 20120608
  Serious: Yes (Hospitalization)
  Sender: FDA-Public Use
  Company Number: IT-ASTRAZENECA-2012SE07681

PATIENT
  Age: 22512 Day
  Sex: Female

DRUGS (8)
  1. MEPIVACAINE HCL [Suspect]
     Indication: LOCAL ANAESTHESIA
     Dosage: 10 VIALS OF 10 ML 2%
     Route: 053
     Dates: start: 20110627, end: 20110627
  2. CALCIUM CARBONATE [Concomitant]
     Dosage: UNK
  3. ARANESP [Concomitant]
     Dosage: UNK
  4. ZANEDIP (LERCANIDIPINE) [Concomitant]
     Dosage: UNK
  5. TENORMIN [Concomitant]
     Dosage: UNK
  6. ROPIVACAINE HYDROCHLORIDE [Suspect]
     Indication: LOCAL ANAESTHESIA
     Dosage: 10 MG /ML ; 5 POLYAMP
     Route: 053
     Dates: start: 20110627, end: 20110627
  7. ROSUVASTATIN [Concomitant]
     Dosage: UNK
  8. LASIX [Concomitant]
     Dosage: UNK

REACTIONS (1)
  - AGITATION [None]
